FAERS Safety Report 8912791 (Version 1)
Quarter: 2012Q4

REPORT INFORMATION
  Report Type: 
  Country: AT (occurrence: AT)
  Receive Date: 20121115
  Receipt Date: 20121115
  Transmission Date: 20130627
  Serious: Yes (Other)
  Sender: FDA-Public Use
  Company Number: AT-BAXTER-2012BAX014888

PATIENT

DRUGS (6)
  1. ENDOXAN BAXTER [Suspect]
     Indication: BRAIN TUMOR
     Route: 048
  2. ETOPOSIDE [Suspect]
     Indication: BRAIN TUMOR
     Route: 048
  3. THALIDOMIDE [Suspect]
     Indication: BRAIN TUMOR
     Route: 048
  4. CELECOXIB [Suspect]
     Indication: BRAIN TUMOR
     Route: 048
  5. FENOFIBRATE [Suspect]
     Indication: BRAIN TUMOR
     Route: 048
  6. BEVACIZUMAB [Suspect]
     Indication: BRAIN TUMOR
     Route: 042

REACTIONS (1)
  - Deep vein thrombosis [Unknown]
